FAERS Safety Report 4351360-1 (Version None)
Quarter: 2004Q2

REPORT INFORMATION
  Report Type: 
  Country: None (occurrence: None)
  Receive Date: 20040430
  Receipt Date: 20040430
  Transmission Date: 20050107
  Serious: No
  Sender: FDA-Public Use
  Company Number: None

PATIENT
  Age: 45 Year
  Sex: Female
  Weight: 88.905 kg

DRUGS (2)
  1. DEXAMETHASONE [Suspect]
     Indication: COLON CANCER METASTATIC
     Dosage: 20 MG IVPB
     Route: 042
     Dates: start: 20040426
  2. DEXAMETHASONE [Suspect]
     Indication: CHEMOTHERAPY
     Dosage: 4MG IVP
     Route: 042
     Dates: start: 20040426

REACTIONS (7)
  - ABDOMINAL PAIN [None]
  - FEELING ABNORMAL [None]
  - FEELING HOT [None]
  - FLUSHING [None]
  - NAUSEA [None]
  - PRURITUS [None]
  - RASH ERYTHEMATOUS [None]
